FAERS Safety Report 9099022 (Version 4)
Quarter: 2013Q2

REPORT INFORMATION
  Report Type: Spontaneous
  Country: US (occurrence: US)
  Receive Date: 20130214
  Receipt Date: 20130520
  Transmission Date: 20140414
  Serious: Yes (Hospitalization)
  Sender: FDA-Public Use
  Company Number: US-ELI_LILLY_AND_COMPANY-US201204005736

PATIENT
  Age: 61 Year
  Sex: Female

DRUGS (24)
  1. FORTEO [Suspect]
     Indication: OSTEOPOROSIS
     Dosage: 20 UG, QD
     Dates: start: 201201
  2. FORTEO [Suspect]
     Dosage: 20 UG, QD
  3. FORTEO [Suspect]
     Dosage: 20 UG, QD
  4. FORTEO [Suspect]
     Dosage: 20 UG, QD
  5. FORTEO [Suspect]
     Dosage: 20 UG, QD
  6. LIPITOR [Concomitant]
     Dosage: UNK
  7. CALCIUM [Concomitant]
     Dosage: UNK
  8. CLONIDINE HCL [Concomitant]
     Dosage: UNK
  9. FLEXERIL [Concomitant]
     Dosage: UNK
  10. DILTIAZEM HCL [Concomitant]
     Dosage: UNK
  11. VITAMIN D [Concomitant]
     Dosage: UNK
  12. FLONASE [Concomitant]
     Dosage: UNK
  13. FOLIC ACID [Concomitant]
     Dosage: UNK
  14. HYDROCODONE [Concomitant]
     Dosage: UNK
  15. LOSARTAN [Concomitant]
     Dosage: UNK
  16. METOPROLOL [Concomitant]
     Dosage: UNK
  17. METHOTREXATE [Concomitant]
     Dosage: UNK
  18. SAVELLA [Concomitant]
     Dosage: UNK
  19. PERCOCET [Concomitant]
     Dosage: UNK
  20. LYRICA [Concomitant]
     Dosage: UNK
  21. PROMETHAZINE [Concomitant]
     Dosage: UNK
  22. ADVAIR [Concomitant]
     Dosage: UNK
  23. SPIRIVA [Concomitant]
     Dosage: UNK
  24. TOPAMAX [Concomitant]
     Dosage: UNK

REACTIONS (12)
  - Loss of consciousness [Unknown]
  - Fall [Unknown]
  - Wrist fracture [Unknown]
  - Blood pressure systolic decreased [Unknown]
  - Incorrect dose administered [Unknown]
  - Visual impairment [Unknown]
  - Fibromyalgia [Not Recovered/Not Resolved]
  - Rheumatoid arthritis [Not Recovered/Not Resolved]
  - Pain [Not Recovered/Not Resolved]
  - Musculoskeletal stiffness [Not Recovered/Not Resolved]
  - Blood pressure fluctuation [Not Recovered/Not Resolved]
  - Dizziness [Not Recovered/Not Resolved]
